FAERS Safety Report 5632426-2 (Version None)
Quarter: 2008Q1

REPORT INFORMATION
  Report Type: 
  Country: None (occurrence: None)
  Receive Date: 20080220
  Receipt Date: 20071102
  Transmission Date: 20080703
  Serious: No
  Sender: FDA-Public Use
  Company Number: US-ASTRAZENECA-2007UW25497

PATIENT
  Age: 61 Year
  Sex: Female
  Weight: 72.6 kg

DRUGS (2)
  1. PLENDIL [Suspect]
     Dates: start: 20020101, end: 20070101
  2. VITAMIN CAP [Concomitant]

REACTIONS (2)
  - GINGIVAL DISORDER [None]
  - TOOTH DISORDER [None]
